FAERS Safety Report 15866993 (Version 1)
Quarter: 2019Q1

REPORT INFORMATION
  Report Type: Spontaneous
  Country: FR (occurrence: FR)
  Receive Date: 20190125
  Receipt Date: 20190125
  Transmission Date: 20190417
  Serious: Yes (Hospitalization)
  Sender: FDA-Public Use
  Company Number: FR-ACCORD-103253

PATIENT
  Age: 66 Year
  Sex: Male
  Weight: 77.8 kg

DRUGS (2)
  1. ESCITALOPRAM [Suspect]
     Active Substance: ESCITALOPRAM OXALATE
     Indication: ABNORMAL BEHAVIOUR
     Route: 048
     Dates: start: 201707, end: 20180316
  2. HALDOL [Interacting]
     Active Substance: HALOPERIDOL
     Indication: ABNORMAL BEHAVIOUR
     Dosage: STRENGTH:2 MG/ML
     Route: 048
     Dates: start: 201802, end: 20180321

REACTIONS (3)
  - Acute kidney injury [Recovering/Resolving]
  - Urinary retention [Recovering/Resolving]
  - Drug interaction [Unknown]

NARRATIVE: CASE EVENT DATE: 201803
